FAERS Safety Report 18396252 (Version 2)
Quarter: 2020Q4

REPORT INFORMATION
  Report Type: Spontaneous
  Country: FR (occurrence: FR)
  Receive Date: 20201019
  Receipt Date: 20201111
  Transmission Date: 20210114
  Serious: Yes (Hospitalization)
  Sender: FDA-Public Use
  Company Number: FR-ROCHE-2696654

PATIENT
  Age: 80 Year
  Sex: Female

DRUGS (3)
  1. LUCENTIS [Suspect]
     Active Substance: RANIBIZUMAB
     Indication: AGE-RELATED MACULAR DEGENERATION
     Dosage: FORM STRENGTH: 10 MG/ML
     Route: 031
     Dates: start: 20200910, end: 20200910
  2. KENZEN (FRANCE) [Concomitant]
     Indication: PRODUCT USED FOR UNKNOWN INDICATION
     Dosage: 16 MG, QD
     Route: 048
  3. ENDOTELON [Concomitant]
     Active Substance: HERBALS\VITIS VINIFERA LEAF
     Indication: PRODUCT USED FOR UNKNOWN INDICATION
     Dosage: 150 MG, BID(IN THE MORNING AND IN THE EVENING)
     Route: 048

REACTIONS (10)
  - Conjunctivitis [Not Recovered/Not Resolved]
  - Rhinitis [Not Recovered/Not Resolved]
  - Headache [Recovered/Resolved]
  - Rash macular [Recovering/Resolving]
  - Fatigue [Unknown]
  - Nausea [Recovering/Resolving]
  - Skin plaque [Unknown]
  - Blood pressure increased [Unknown]
  - Pallor [Unknown]
  - Myalgia [Unknown]

NARRATIVE: CASE EVENT DATE: 20200918
